FAERS Safety Report 20470643 (Version 1)
Quarter: 2022Q1

REPORT INFORMATION
  Report Type: Spontaneous
  Country: US (occurrence: US)
  Receive Date: 20220214
  Receipt Date: 20220214
  Transmission Date: 20220424
  Serious: Yes (Death, Hospitalization)
  Sender: FDA-Public Use
  Company Number: US-PFIZER INC-202200254010

PATIENT
  Age: 58 Year
  Sex: Male

DRUGS (5)
  1. PRAZOSIN HYDROCHLORIDE [Suspect]
     Active Substance: PRAZOSIN HYDROCHLORIDE
     Dosage: UNK (INGESTION)
     Route: 048
  2. HYDROXYZINE PAMOATE [Suspect]
     Active Substance: HYDROXYZINE PAMOATE
     Dosage: UNK (INGESTION)
     Route: 048
  3. GABAPENTIN [Suspect]
     Active Substance: GABAPENTIN
     Dosage: UNK (INGESTION)
     Route: 048
  4. LISINOPRIL [Suspect]
     Active Substance: LISINOPRIL
     Dosage: UNK (INGESTION)
     Route: 048
  5. MIRTAZAPINE [Suspect]
     Active Substance: MIRTAZAPINE
     Dosage: UNK (INGESTION)
     Route: 048

REACTIONS (1)
  - Completed suicide [Fatal]

NARRATIVE: CASE EVENT DATE: 20200101
